FAERS Safety Report 12543923 (Version 2)
Quarter: 2016Q3

REPORT INFORMATION
  Report Type: Spontaneous
  Country: US (occurrence: US)
  Receive Date: 20160711
  Receipt Date: 20160714
  Transmission Date: 20161109
  Serious: No
  Sender: FDA-Public Use
  Company Number: US-HORIZON-RAV-0124-2016

PATIENT
  Age: 66 Year
  Sex: Female

DRUGS (3)
  1. RAVICTI [Suspect]
     Active Substance: GLYCEROL PHENYLBUTYRATE
     Indication: ORNITHINE TRANSCARBAMOYLASE DEFICIENCY
     Dosage: 3 ML TID
     Dates: start: 20160628
  2. LACTULOSE. [Concomitant]
     Active Substance: LACTULOSE
  3. ASPIRIN. [Concomitant]
     Active Substance: ASPIRIN

REACTIONS (5)
  - Pollakiuria [Recovered/Resolved]
  - Drug dose omission [Unknown]
  - Lethargy [Not Recovered/Not Resolved]
  - Ocular hyperaemia [Unknown]
  - Headache [Recovered/Resolved]

NARRATIVE: CASE EVENT DATE: 20160629
